FAERS Safety Report 25996422 (Version 1)
Quarter: 2025Q4

REPORT INFORMATION
  Report Type: Spontaneous
  Country: US (occurrence: US)
  Receive Date: 20251104
  Receipt Date: 20251104
  Transmission Date: 20260117
  Serious: Yes (Other)
  Sender: ROCHE
  Company Number: US-ROCHE-10000418782

PATIENT
  Sex: Female
  Weight: 70.31 kg

DRUGS (17)
  1. AVASTIN [Suspect]
     Active Substance: BEVACIZUMAB
     Indication: Ovarian cancer
     Route: 065
     Dates: start: 202211
  2. CARBOPLATIN [Suspect]
     Active Substance: CARBOPLATIN
     Indication: Chemotherapy
     Route: 065
     Dates: start: 202211, end: 202506
  3. PACLITAXEL [Suspect]
     Active Substance: PACLITAXEL
     Indication: Chemotherapy
     Route: 065
     Dates: start: 202211, end: 202506
  4. BUPROPION [Concomitant]
     Active Substance: BUPROPION
  5. BUPROPION [Concomitant]
     Active Substance: BUPROPION
  6. GABA [Concomitant]
     Active Substance: HOMEOPATHICS
  7. GABA [Concomitant]
     Active Substance: HOMEOPATHICS
  8. LITHIUM OROTATE [Concomitant]
     Active Substance: LITHIUM OROTATE
  9. LITHIUM OROTATE [Concomitant]
     Active Substance: LITHIUM OROTATE
  10. GEMTESA [Concomitant]
     Active Substance: VIBEGRON
  11. GEMTESA [Concomitant]
     Active Substance: VIBEGRON
  12. PROLIA [Concomitant]
     Active Substance: DENOSUMAB
     Indication: Osteoporosis
  13. PROLIA [Concomitant]
     Active Substance: DENOSUMAB
  14. CALCIUM [Concomitant]
     Active Substance: CALCIUM
     Route: 048
  15. CALCIUM [Concomitant]
     Active Substance: CALCIUM
     Route: 048
  16. VITAMIN B12 [Concomitant]
     Active Substance: CYANOCOBALAMIN
  17. VITAMIN B12 [Concomitant]
     Active Substance: CYANOCOBALAMIN

REACTIONS (17)
  - Fatigue [Recovered/Resolved]
  - Neuropathy peripheral [Recovering/Resolving]
  - Recurrent cancer [Unknown]
  - Joint injury [Not Recovered/Not Resolved]
  - Tendonitis [Not Recovered/Not Resolved]
  - Contusion [Unknown]
  - Arthritis [Not Recovered/Not Resolved]
  - Spider naevus [Not Recovered/Not Resolved]
  - Anaemia [Unknown]
  - Asthenia [Not Recovered/Not Resolved]
  - Tendon pain [Unknown]
  - Tendon disorder [Unknown]
  - Tenotomy [Unknown]
  - Pain [Unknown]
  - Arthropathy [Unknown]
  - Dental caries [Unknown]
  - Hypersensitivity [Unknown]
